FAERS Safety Report 5597593-8 (Version None)
Quarter: 2008Q1

REPORT INFORMATION
  Report Type: 
  Country: None (occurrence: None)
  Receive Date: 20080121
  Receipt Date: 20080110
  Transmission Date: 20080703
  Serious: Yes (Hospitalization)
  Sender: FDA-Public Use
  Company Number: B0503453A

PATIENT
  Age: 77 Year
  Sex: Male

DRUGS (1)
  1. AUGMENTIN '125' [Suspect]
     Indication: PROPHYLAXIS
     Route: 048
     Dates: start: 20071014

REACTIONS (6)
  - C-REACTIVE PROTEIN INCREASED [None]
  - DYSPNOEA [None]
  - ERYTHEMA [None]
  - GENERALISED ERYTHEMA [None]
  - PYREXIA [None]
  - RALES [None]
